FAERS Safety Report 6645815-4 (Version None)
Quarter: 2010Q1

REPORT INFORMATION
  Report Type: 
  Country: None (occurrence: None)
  Receive Date: 20100318
  Receipt Date: 20100309
  Transmission Date: 20100710
  Serious: Yes (Hospitalization, Other)
  Sender: FDA-Public Use
  Company Number: FABR-1000971

PATIENT
  Age: 51 Year
  Sex: Male
  Weight: 60.3 kg

DRUGS (3)
  1. FABRAZYME [Suspect]
     Indication: FABRY'S DISEASE
     Dosage: 65 MG, Q2W, INTRAVENOUS ; 65 MG, Q2W, INTRAVENOUS
     Route: 042
     Dates: start: 20030312
  2. FABRAZYME [Suspect]
     Indication: FABRY'S DISEASE
     Dosage: 65 MG, Q2W, INTRAVENOUS ; 65 MG, Q2W, INTRAVENOUS
     Route: 042
     Dates: start: 20090101
  3. MYCOPHENOLIC ACID [Concomitant]

REACTIONS (2)
  - GASTROINTESTINAL HAEMORRHAGE [None]
  - TRANSPLANT FAILURE [None]
